FAERS Safety Report 23928948 (Version 2)
Quarter: 2025Q3

REPORT INFORMATION
  Report Type: Spontaneous
  Country: US (occurrence: US)
  Receive Date: 20240601
  Receipt Date: 20250703
  Transmission Date: 20251021
  Serious: No
  Sender: RADIUS PHARM
  Company Number: US-RADIUS HEALTH INC.-2023US005638

PATIENT
  Sex: Male
  Weight: 144.67 kg

DRUGS (1)
  1. TYMLOS [Suspect]
     Active Substance: ABALOPARATIDE
     Indication: Senile osteoporosis
     Route: 058

REACTIONS (6)
  - Hyperhidrosis [Unknown]
  - Dizziness [Unknown]
  - Urine abnormality [Unknown]
  - Loss of personal independence in daily activities [Unknown]
  - Urine odour abnormal [Unknown]
  - Product quality issue [Unknown]
